FAERS Safety Report 6258254-5 (Version None)
Quarter: 2009Q3

REPORT INFORMATION
  Report Type: 
  Country: None (occurrence: None)
  Receive Date: 20090707
  Receipt Date: 20090629
  Transmission Date: 20100115
  Serious: Yes (Other)
  Sender: FDA-Public Use
  Company Number: DE-BAYER-200924537GPV

PATIENT
  Age: 40 Year
  Sex: Female
  Weight: 71 kg

DRUGS (1)
  1. MIRENA [Suspect]
     Indication: CONTRACEPTION
     Route: 015
     Dates: start: 20021201, end: 20080701

REACTIONS (12)
  - ARTHRALGIA [None]
  - DEPRESSION [None]
  - FATIGUE [None]
  - FUNGAL INFECTION [None]
  - HYPERHIDROSIS [None]
  - MIGRAINE [None]
  - OEDEMA [None]
  - OVARIAN CYST [None]
  - PALPITATIONS [None]
  - PANIC ATTACK [None]
  - SLEEP DISORDER [None]
  - WEIGHT INCREASED [None]
